FAERS Safety Report 9649306 (Version 2)
Quarter: 2013Q4

REPORT INFORMATION
  Report Type: Spontaneous
  Country: CA (occurrence: CA)
  Receive Date: 20131028
  Receipt Date: 20131112
  Transmission Date: 20140711
  Serious: Yes (Life-Threatening)
  Sender: FDA-Public Use
  Company Number: PHHY2013CA120169

PATIENT
  Age: 90 Year
  Sex: Female

DRUGS (1)
  1. STALEVO [Suspect]
     Dosage: UNK UKN, UNK

REACTIONS (4)
  - Apparent death [Unknown]
  - Choking [Unknown]
  - Fear of death [Unknown]
  - Reflexes abnormal [Unknown]
